FAERS Safety Report 9154659 (Version 2)
Quarter: 2013Q1

REPORT INFORMATION
  Report Type: Spontaneous
  Country: US (occurrence: None)
  Receive Date: 20130206
  Receipt Date: 20130222
  Transmission Date: 20140127
  Serious: Yes (Hospitalization, Other)
  Sender: FDA-Public Use
  Company Number: IPC201301-000031

PATIENT
  Age: 47 Year
  Sex: Female
  Weight: 77.57 kg

DRUGS (4)
  1. HYDROXYCHLOROQUINE SULFATE [Suspect]
     Indication: SYSTEMIC LUPUS ERYTHEMATOSUS
     Dates: start: 20121009, end: 20121021
  2. LEVOTHYROXINE [Concomitant]
  3. ALPARAZOLAM [Concomitant]
  4. ADVIL LIQUID GELS [Concomitant]

REACTIONS (12)
  - Reaction to drug excipients [None]
  - Hypersensitivity [None]
  - Rash [None]
  - Skin burning sensation [None]
  - Swelling [None]
  - Skin exfoliation [None]
  - Blister [None]
  - Pruritus [None]
  - Papule [None]
  - Poisoning [None]
  - Erythema [None]
  - Local swelling [None]
